FAERS Safety Report 7266416-3 (Version None)
Quarter: 2011Q1

REPORT INFORMATION
  Report Type: 
  Country: None (occurrence: None)
  Receive Date: 20110131
  Receipt Date: 20110125
  Transmission Date: 20110831
  Serious: Yes (Hospitalization)
  Sender: FDA-Public Use
  Company Number: NL-MEDIMMUNE-MEDI-0012358

PATIENT
  Sex: Female

DRUGS (2)
  1. SYNAGIS [Suspect]
     Route: 030
     Dates: start: 20101005, end: 20101228
  2. SYNAGIS [Suspect]
     Route: 030
     Dates: start: 20100125, end: 20100125

REACTIONS (3)
  - HYPOPHAGIA [None]
  - RESPIRATORY SYNCYTIAL VIRUS TEST POSITIVE [None]
  - COUGH [None]
